FAERS Safety Report 5846366-7 (Version None)
Quarter: 2008Q3

REPORT INFORMATION
  Report Type: 
  Country: None (occurrence: None)
  Receive Date: 20080815
  Receipt Date: 20080808
  Transmission Date: 20090109
  Serious: Yes (Other)
  Sender: FDA-Public Use
  Company Number: AU-JNJFOC-20080801525

PATIENT
  Age: 4 Decade
  Sex: Female

DRUGS (1)
  1. TOPAMAX [Suspect]
     Indication: EPILEPSY
     Route: 048

REACTIONS (4)
  - HEADACHE [None]
  - PARAESTHESIA [None]
  - PARAESTHESIA ORAL [None]
  - TRANSIENT ISCHAEMIC ATTACK [None]
